FAERS Safety Report 17075771 (Version 1)
Quarter: 2019Q4

REPORT INFORMATION
  Report Type: Spontaneous
  Country: US (occurrence: US)
  Receive Date: 20191125
  Receipt Date: 20191125
  Transmission Date: 20200122
  Serious: Yes (Death)
  Sender: FDA-Public Use
  Company Number: None

PATIENT
  Age: 96 Year
  Sex: Female

DRUGS (8)
  1. SODIUM BICARBENATE [Concomitant]
  2. SEVELAMER [Concomitant]
     Active Substance: SEVELAMER
  3. BUMETANIDE. [Concomitant]
     Active Substance: BUMETANIDE
  4. RETACRIT [Suspect]
     Active Substance: EPOETIN ALFA-EPBX
     Indication: CHRONIC KIDNEY DISEASE
     Dosage: ?          OTHER FREQUENCY:EVERY 2 WEEKS;?
     Route: 058
     Dates: start: 20190730, end: 20191120
  5. POLY-IRON [Concomitant]
     Active Substance: IRON
  6. METOPROL SUC TAB [Concomitant]
  7. LEVOTHYROXIN [Concomitant]
     Active Substance: LEVOTHYROXINE
  8. CALCITROL [Concomitant]

REACTIONS (1)
  - Death [None]

NARRATIVE: CASE EVENT DATE: 20191120
